FAERS Safety Report 6053332-8 (Version None)
Quarter: 2009Q1

REPORT INFORMATION
  Report Type: 
  Country: None (occurrence: None)
  Receive Date: 20090127
  Receipt Date: 20090116
  Transmission Date: 20090719
  Serious: Yes (Other)
  Sender: FDA-Public Use
  Company Number: B0554525A

PATIENT
  Age: 17 Year
  Sex: Female

DRUGS (16)
  1. ZOPHREN [Suspect]
     Indication: PREMEDICATION
     Dosage: 8MG PER DAY
     Route: 042
     Dates: start: 20081211, end: 20081211
  2. ASPARAGINASE [Suspect]
     Route: 030
     Dates: start: 20081211, end: 20081211
  3. NUBAIN [Suspect]
     Indication: PAIN
     Route: 042
     Dates: start: 20081211, end: 20081211
  4. METHOTREXATE [Suspect]
     Indication: CHEMOTHERAPY
     Dosage: 1340MG PER DAY
     Route: 042
     Dates: start: 20081208, end: 20081210
  5. VINCRISTINE [Suspect]
     Indication: CHEMOTHERAPY
     Dosage: 2MG PER DAY
     Route: 042
     Dates: start: 20081208, end: 20081208
  6. FLUCONAZOLE [Suspect]
     Dosage: 130MG PER DAY
     Route: 042
     Dates: start: 20081210, end: 20081210
  7. DECTANCYL [Suspect]
     Indication: CHEMOTHERAPY
     Dosage: 13.5MG PER DAY
     Route: 048
     Dates: start: 20081211, end: 20081211
  8. BEVITINE [Suspect]
     Dosage: 100MG PER DAY
     Route: 042
     Dates: start: 20081211, end: 20081211
  9. PYRIDOXINE [Suspect]
     Route: 042
     Dates: start: 20081211, end: 20081211
  10. LYRICA [Concomitant]
     Route: 065
  11. KARDEGIC [Concomitant]
     Indication: CARDIOMYOPATHY
     Route: 065
  12. CARDENSIEL [Concomitant]
     Route: 065
  13. LASILIX [Concomitant]
     Route: 065
  14. CYTARABINE [Concomitant]
     Indication: CHEMOTHERAPY
     Dosage: 30MG PER DAY
     Route: 065
     Dates: start: 20081210, end: 20081210
  15. DEPO-MEDROL [Concomitant]
     Dosage: 10MG PER DAY
     Route: 065
     Dates: start: 20081210, end: 20081210
  16. OMEPRAZOLE [Concomitant]
     Dosage: 40MG PER DAY
     Route: 042
     Dates: start: 20081210, end: 20081210

REACTIONS (3)
  - ASTHMATIC CRISIS [None]
  - OXYGEN SATURATION DECREASED [None]
  - URTICARIA [None]
